FAERS Safety Report 20968850 (Version 3)
Quarter: 2022Q2

REPORT INFORMATION
  Report Type: Spontaneous
  Country: IN (occurrence: IN)
  Receive Date: 20220616
  Receipt Date: 20220621
  Transmission Date: 20220721
  Serious: Yes (Death, Life-Threatening, Hospitalization, Other)
  Sender: FDA-Public Use
  Company Number: IN-MLMSERVICE-20220606-3598540-2

PATIENT
  Age: 55 Year
  Sex: Male

DRUGS (1)
  1. METHOTREXATE [Suspect]
     Active Substance: METHOTREXATE
     Indication: Psoriasis
     Dosage: 2.5 MG, 3X/DAY
     Route: 048

REACTIONS (9)
  - Inappropriate schedule of product administration [Fatal]
  - Incorrect dose administered [Fatal]
  - Toxicity to various agents [Fatal]
  - Skin ulcer [Fatal]
  - Renal injury [Fatal]
  - Septic shock [Fatal]
  - Haematotoxicity [Fatal]
  - Hepatotoxicity [Fatal]
  - Mucosal ulceration [Fatal]
